FAERS Safety Report 4642106-8 (Version None)
Quarter: 2005Q2

REPORT INFORMATION
  Report Type: 
  Country: None (occurrence: None)
  Receive Date: 20050422
  Receipt Date: 20050413
  Transmission Date: 20051028
  Serious: Yes (Hospitalization)
  Sender: FDA-Public Use
  Company Number: DK-ABBOTT-05P-044-0297464-00

PATIENT
  Sex: Female

DRUGS (1)
  1. HUMIRA [Suspect]
     Indication: RHEUMATOID ARTHRITIS
     Route: 058
     Dates: start: 20050127, end: 20050324

REACTIONS (15)
  - ABDOMINAL PAIN [None]
  - CHEST DISCOMFORT [None]
  - DECREASED APPETITE [None]
  - DISTURBANCE IN ATTENTION [None]
  - DYSPNOEA [None]
  - FATIGUE [None]
  - GINGIVAL PAIN [None]
  - HIATUS HERNIA [None]
  - INFLUENZA [None]
  - MYALGIA [None]
  - NERVOUSNESS [None]
  - RASH [None]
  - VERTIGO [None]
  - VISION BLURRED [None]
  - WEIGHT DECREASED [None]
